FAERS Safety Report 6599815-3 (Version None)
Quarter: 2010Q1

REPORT INFORMATION
  Report Type: 
  Country: None (occurrence: None)
  Receive Date: 20100217
  Receipt Date: 20100202
  Transmission Date: 20100710
  Serious: Yes (Death, Life-Threatening, Other)
  Sender: FDA-Public Use
  Company Number: 2010US000228

PATIENT
  Age: 62 Year
  Sex: Male

DRUGS (13)
  1. PROGRAF [Suspect]
     Indication: RENAL TRANSPLANT
     Dosage: 2 MG, BID, ORAL, 1 MG, BID ORAL
     Route: 048
     Dates: end: 20100122
  2. ZOCOR [Concomitant]
  3. PREDNISONE [Concomitant]
  4. LASIX [Concomitant]
  5. LANTUS [Concomitant]
  6. HUMALOG (INSULIN) INJECTION [Concomitant]
  7. GABAPENTIN (GABAPENTIN) CAPSULE [Concomitant]
  8. COUMADIN [Concomitant]
  9. COREG (CARVEDILOL) TABLET [Concomitant]
  10. CALTRATE+VITAMIN D (CALCIUM CARBONATE, COLECALCIFEROL) [Concomitant]
  11. BETAMETHASONE VALERATE (BETAMETHASONE VALERATE) LOTION [Concomitant]
  12. BACTRIM [Concomitant]
  13. ASPIRIN (ACETYLSALICYLIC ACID) ENTERIC TABLET [Concomitant]

REACTIONS (2)
  - HAEMORRHAGE [None]
  - MULTI-ORGAN FAILURE [None]
